FAERS Safety Report 12488933 (Version 3)
Quarter: 2016Q3

REPORT INFORMATION
  Report Type: Report from Study
  Country: US (occurrence: US)
  Receive Date: 20160622
  Receipt Date: 20160808
  Transmission Date: 20161109
  Serious: Yes (Other)
  Sender: FDA-Public Use
  Company Number: US-009507513-1606USA009127

PATIENT
  Age: 70 Year
  Sex: Female

DRUGS (2)
  1. EMEND [Suspect]
     Active Substance: APREPITANT
     Indication: NAUSEA
     Dosage: 1 TABLET (125/80 MG), ONCE
     Route: 048
     Dates: start: 20160609, end: 20160609
  2. EMEND [Suspect]
     Active Substance: APREPITANT
     Dosage: UNK, AS PRESCRIBED
     Route: 048
     Dates: start: 2016

REACTIONS (3)
  - Lymphoma [Not Recovered/Not Resolved]
  - Drug ineffective [Not Recovered/Not Resolved]
  - Intentional product misuse [Unknown]

NARRATIVE: CASE EVENT DATE: 201606
